FAERS Safety Report 21243381 (Version 1)
Quarter: 2022Q3

REPORT INFORMATION
  Report Type: Spontaneous
  Country: US (occurrence: US)
  Receive Date: 20220823
  Receipt Date: 20220823
  Transmission Date: 20221027
  Serious: Yes (Other)
  Sender: FDA-Public Use
  Company Number: US-MYLANLABS-2022M1088391

PATIENT
  Age: 71 Year
  Sex: Male

DRUGS (12)
  1. CARBOPLATIN [Suspect]
     Active Substance: CARBOPLATIN
     Indication: Lung squamous cell carcinoma metastatic
     Dosage: UNK, 4 CYCLES OF CARBOPLATIN, PACLITAXEL AND PEMBROLIZUMAB
     Route: 065
  2. CARBOPLATIN [Suspect]
     Active Substance: CARBOPLATIN
     Dosage: UNK, Q3W,2 CYCLES OF CARBOPLATIN, PACLITAXEL, NIVOLUMAB AND IPILIMUMAB COMBINED THERAPY
     Route: 065
  3. PACLITAXEL [Suspect]
     Active Substance: PACLITAXEL
     Indication: Lung squamous cell carcinoma metastatic
     Dosage: UNK, 4 CYCLES OF CARBOPLATIN, PACLITAXEL AND PEMBROLIZUMAB
     Route: 065
  4. PACLITAXEL [Suspect]
     Active Substance: PACLITAXEL
     Dosage: UNK, Q3W, 2 CYCLES OF CARBOPLATIN, PACLITAXEL, NIVOLUMAB AND IPILIMUMAB COMBINED THERAPY
     Route: 065
  5. PEMBROLIZUMAB [Suspect]
     Active Substance: PEMBROLIZUMAB
     Indication: Lung squamous cell carcinoma metastatic
     Dosage: UNK, 4 CYCLES OF CARBOPLATIN, PACLITAXEL AND PEMBROLIZUMAB
     Route: 065
  6. PEMBROLIZUMAB [Suspect]
     Active Substance: PEMBROLIZUMAB
     Dosage: UNK, ONE DOSE OF MAINTENANCE PEMBROLIZUMAB
     Route: 065
  7. NIVOLUMAB [Concomitant]
     Active Substance: NIVOLUMAB
     Indication: Lung squamous cell carcinoma metastatic
     Dosage: UNK, Q3W, 2 CYCLES OF CARBOPLATIN, PACLITAXEL, NIVOLUMAB AND IPILIMUMAB COMBINED THERAPY
     Route: 065
  8. NIVOLUMAB [Concomitant]
     Active Substance: NIVOLUMAB
     Dosage: UNK, MAINTENANCE IPILIMUMAB AND NIVOLUMAB
     Route: 065
  9. IPILIMUMAB [Concomitant]
     Active Substance: IPILIMUMAB
     Indication: Lung squamous cell carcinoma metastatic
     Dosage: UNK, Q3W,2 CYCLES OF CARBOPLATIN, PACLITAXEL, NIVOLUMAB AND IPILIMUMAB COMBINED THERAPY
     Route: 065
  10. IPILIMUMAB [Concomitant]
     Active Substance: IPILIMUMAB
     Dosage: UNK,MAINTENANCE IPILIMUMAB AND NIVOLUMAB
     Route: 065
  11. BEVACIZUMAB [Concomitant]
     Active Substance: BEVACIZUMAB
     Indication: Brain oedema
     Dosage: UNK, 6 CYCLES OF BEVACIZUMAB
     Route: 065
  12. BEVACIZUMAB [Concomitant]
     Active Substance: BEVACIZUMAB
     Indication: Metastases to central nervous system

REACTIONS (2)
  - Adrenal insufficiency [Unknown]
  - Thyroiditis [Unknown]
